FAERS Safety Report 18275551 (Version 1)
Quarter: 2020Q3

REPORT INFORMATION
  Report Type: Spontaneous
  Country: JP (occurrence: JP)
  Receive Date: 20200916
  Receipt Date: 20200916
  Transmission Date: 20201103
  Serious: Yes (Hospitalization)
  Sender: FDA-Public Use
  Company Number: JP-JNJFOC-20200717811

PATIENT
  Age: 84 Year
  Sex: Female

DRUGS (2)
  1. REMINYL [Suspect]
     Active Substance: GALANTAMINE
     Dosage: UNKNOWN
     Route: 048
     Dates: start: 202005
  2. REMINYL [Suspect]
     Active Substance: GALANTAMINE
     Indication: DEMENTIA ALZHEIMER^S TYPE
     Dosage: UNKNOWN
     Route: 048
     Dates: start: 202004, end: 202005

REACTIONS (3)
  - Heat illness [Unknown]
  - Weight decreased [Unknown]
  - Nausea [Unknown]

NARRATIVE: CASE EVENT DATE: 2020
